FAERS Safety Report 7042977-4 (Version None)
Quarter: 2010Q4

REPORT INFORMATION
  Report Type: 
  Country: None (occurrence: None)
  Receive Date: 20101013
  Receipt Date: 20100930
  Transmission Date: 20110411
  Serious: Yes (Hospitalization)
  Sender: FDA-Public Use
  Company Number: PHHY2010NL65049

PATIENT
  Sex: Female

DRUGS (2)
  1. ZOMETA [Suspect]
     Dosage: 04 MG/5 ML
     Dates: start: 20100803
  2. ZOMETA [Suspect]
     Dosage: 04 MG/5 ML
     Dates: start: 20100830

REACTIONS (2)
  - HIP FRACTURE [None]
  - HIP SURGERY [None]
